FAERS Safety Report 23167440 (Version 1)
Quarter: 2023Q4

REPORT INFORMATION
  Report Type: Spontaneous
  Country: US (occurrence: US)
  Receive Date: 20231109
  Receipt Date: 20231109
  Transmission Date: 20240110
  Serious: No
  Sender: FDA-Public Use
  Company Number: US-SA-SAC20231019000033

PATIENT
  Sex: Female
  Weight: 121 kg

DRUGS (2)
  1. DUPIXENT [Suspect]
     Active Substance: DUPILUMAB
     Indication: Illness
     Dosage: 300 MG, QOW
     Route: 058
  2. MEDROL [Concomitant]
     Active Substance: METHYLPREDNISOLONE

REACTIONS (4)
  - Pain [Unknown]
  - Condition aggravated [Unknown]
  - Eczema [Unknown]
  - Skin burning sensation [Unknown]
